FAERS Safety Report 9324711 (Version 2)
Quarter: 2013Q3

REPORT INFORMATION
  Report Type: Spontaneous
  Country: FI (occurrence: FI)
  Receive Date: 20130603
  Receipt Date: 20130726
  Transmission Date: 20140515
  Serious: Yes (Hospitalization)
  Sender: FDA-Public Use
  Company Number: FI-GLAXOSMITHKLINE-B0896460A

PATIENT
  Sex: Male

DRUGS (5)
  1. AVODART [Suspect]
     Indication: BENIGN PROSTATIC HYPERPLASIA
     Route: 048
     Dates: start: 20080201, end: 20130521
  2. TAMBOCOR [Concomitant]
  3. CRESTOR [Concomitant]
  4. ORLOC [Concomitant]
  5. MAREVAN [Concomitant]

REACTIONS (1)
  - Invasive papillary breast carcinoma [Not Recovered/Not Resolved]
